FAERS Safety Report 6135960-4 (Version None)
Quarter: 2009Q1

REPORT INFORMATION
  Report Type: 
  Country: None (occurrence: None)
  Receive Date: 20090329
  Receipt Date: 20090227
  Transmission Date: 20090719
  Serious: No
  Sender: FDA-Public Use
  Company Number: US-BAUSCH-2009BL000857

PATIENT
  Age: 46 Year
  Sex: Female

DRUGS (2)
  1. ALAWAY [Suspect]
     Indication: KERATOCONJUNCTIVITIS SICCA
     Route: 047
     Dates: start: 20090227, end: 20090227
  2. ALAWAY [Suspect]
     Indication: OFF LABEL USE
     Route: 047
     Dates: start: 20090227, end: 20090227

REACTIONS (1)
  - EYE IRRITATION [None]
